FAERS Safety Report 4597470-5 (Version None)
Quarter: 2005Q1

REPORT INFORMATION
  Report Type: 
  Country: None (occurrence: None)
  Receive Date: 20050303
  Receipt Date: 20050221
  Transmission Date: 20050727
  Serious: Yes (Death, Life-Threatening)
  Sender: FDA-Public Use
  Company Number: JP-JNJFOC-20041202089

PATIENT
  Sex: Male

DRUGS (26)
  1. DUROTEP [Suspect]
     Indication: CANCER PAIN
     Route: 062
     Dates: start: 20040702, end: 20040803
  2. TANDOSPIRONE CITRATE [Concomitant]
     Indication: ANXIETY
     Route: 049
  3. MIANSERIN HYDROCHLORIDE [Concomitant]
     Indication: DEPRESSION
     Route: 049
     Dates: start: 20040702
  4. PREDNISOLONE [Concomitant]
     Indication: TUMOUR ASSOCIATED FEVER
     Route: 049
     Dates: start: 20040702
  5. RABEPRAZOLE SODIUM [Concomitant]
     Route: 049
  6. MORPHINE HYDROCHLORIDE [Concomitant]
  7. MORPHINE HYDROCHLORIDE [Concomitant]
  8. MORPHINE HYDROCHLORIDE [Concomitant]
     Dosage: ROUTE: PARENTAL
  9. MORPHINE HYDROCHLORIDE [Concomitant]
  10. MORPHINE HYDROCHLORIDE [Concomitant]
  11. MORPHINE HYDROCHLORIDE [Concomitant]
  12. MORPHINE HYDROCHLORIDE [Concomitant]
  13. MORPHINE HYDROCHLORIDE [Concomitant]
  14. MORPHINE HYDROCHLORIDE [Concomitant]
     Dosage: ROUTE: ORAL
  15. MORPHINE HYDROCHLORIDE [Concomitant]
     Dosage: ROUTE: PARENTAL
  16. MORPHINE HYDROCHLORIDE [Concomitant]
  17. MORPHINE HYDROCHLORIDE [Concomitant]
  18. MORPHINE HYDROCHLORIDE [Concomitant]
  19. MORPHINE HYDROCHLORIDE [Concomitant]
  20. MORPHINE HYDROCHLORIDE [Concomitant]
     Indication: CANCER PAIN
  21. SODIUM PICOSULFATE [Concomitant]
     Indication: CONSTIPATION
     Route: 049
  22. KETAMINE HCL [Concomitant]
     Indication: ANALGESIC THERAPY
     Dosage: 60-200 MG/DAY
     Route: 042
  23. MIDAZOLAM HCL [Concomitant]
     Route: 042
  24. MIDAZOLAM HCL [Concomitant]
     Indication: ANALGESIC THERAPY
     Dosage: 6-20 MG/DAY
     Route: 042
  25. LOXOPROFEN SODIUM [Concomitant]
     Indication: CANCER PAIN
     Route: 049
  26. SENNOSIDE [Concomitant]
     Indication: CONSTIPATION
     Dosage: 0-2 DOSAGE FORM/DAY
     Route: 049

REACTIONS (5)
  - DELIRIUM [None]
  - HYPOXIA [None]
  - INSOMNIA [None]
  - LUNG NEOPLASM MALIGNANT [None]
  - SUICIDE ATTEMPT [None]
